FAERS Safety Report 5529279-X (Version None)
Quarter: 2007Q4

REPORT INFORMATION
  Report Type: 
  Country: None (occurrence: None)
  Receive Date: 20071129
  Receipt Date: 20071119
  Transmission Date: 20080405
  Serious: Yes (Hospitalization)
  Sender: FDA-Public Use
  Company Number: JP-BAXTER-2007BH009150

PATIENT
  Age: 24 Year
  Sex: Male
  Weight: 61 kg

DRUGS (5)
  1. DIANEAL [Suspect]
     Indication: PERITONEAL DIALYSIS
     Route: 033
     Dates: start: 19971201, end: 20070301
  2. DIANEAL [Suspect]
     Route: 033
     Dates: start: 20070302
  3. ADALAT [Concomitant]
     Indication: HYPERTENSION
     Route: 048
  4. ROCALTROL [Concomitant]
     Indication: DRUG USE FOR UNKNOWN INDICATION
     Route: 048
  5. SEVELAMER HYDROCHLORIDE [Concomitant]
     Indication: HYPERURICAEMIA
     Route: 048

REACTIONS (4)
  - PERITONITIS BACTERIAL [None]
  - PYREXIA [None]
  - SCLEROSING ENCAPSULATING PERITONITIS [None]
  - VOMITING [None]
